FAERS Safety Report 7884014-5 (Version None)
Quarter: 2011Q4

REPORT INFORMATION
  Report Type: 
  Country: None (occurrence: None)
  Receive Date: 20111102
  Receipt Date: 20111027
  Transmission Date: 20120403
  Serious: No
  Sender: FDA-Public Use
  Company Number: PHEH2011US06865

PATIENT
  Sex: Female
  Weight: 52.154 kg

DRUGS (7)
  1. FIORICET [Concomitant]
     Dosage: UNK UKN, UNK
  2. GILENYA [Suspect]
     Indication: MULTIPLE SCLEROSIS
     Dosage: 0.5 MG, QD
     Route: 048
     Dates: start: 20110606
  3. VITAMIN D [Concomitant]
     Dosage: UNK UKN, UNK
  4. PROVIGIL [Concomitant]
     Dosage: 100 MG, UNK
  5. MUCINEX [Concomitant]
     Dosage: 1200 MG, UNK
  6. MULTI-VITAMINS [Concomitant]
     Dosage: UNK UKN, UNK
  7. DETROL [Concomitant]
     Dosage: 1 MG, UNK

REACTIONS (1)
  - BREAST MASS [None]
